FAERS Safety Report 23428481 (Version 3)
Quarter: 2024Q1

REPORT INFORMATION
  Report Type: Spontaneous
  Country: US (occurrence: US)
  Receive Date: 20240122
  Receipt Date: 20240126
  Transmission Date: 20240410
  Serious: Yes (Other)
  Sender: FDA-Public Use
  Company Number: US-SANDOZ-SDZ2024US006062

PATIENT
  Age: 58 Year
  Sex: Female

DRUGS (2)
  1. ATORVASTATIN [Suspect]
     Active Substance: ATORVASTATIN
     Indication: Product used for unknown indication
     Dosage: UNK
     Route: 065
  2. ENTRESTO [Suspect]
     Active Substance: SACUBITRIL\VALSARTAN
     Indication: Cardiac failure
     Dosage: 24.26 MG, BID
     Route: 048
     Dates: start: 202102

REACTIONS (12)
  - Sleep apnoea syndrome [Recovered/Resolved]
  - Ejection fraction abnormal [Recovered/Resolved]
  - Respiration abnormal [Recovered/Resolved]
  - Weight decreased [Recovering/Resolving]
  - Hypertension [Recovered/Resolved]
  - Abdominal distension [Unknown]
  - Blood glucose increased [Unknown]
  - Chest pain [Recovering/Resolving]
  - Nasopharyngitis [Recovering/Resolving]
  - Flatulence [Unknown]
  - Hypoaesthesia [Unknown]
  - Insomnia [Recovering/Resolving]

NARRATIVE: CASE EVENT DATE: 20210201
